FAERS Safety Report 5242491-2 (Version None)
Quarter: 2007Q1

REPORT INFORMATION
  Report Type: 
  Country: None (occurrence: None)
  Receive Date: 20070221
  Receipt Date: 20070214
  Transmission Date: 20070707
  Serious: Yes (Death)
  Sender: FDA-Public Use
  Company Number: JP-AVENTIS-200710436JP

PATIENT
  Age: 56 Year
  Sex: Male
  Weight: 58 kg

DRUGS (10)
  1. ROXITHROMYCIN [Suspect]
     Route: 048
  2. FUROSEMIDE [Suspect]
     Route: 048
  3. ETRETINATE [Suspect]
     Route: 048
  4. INDOMETHACIN [Suspect]
     Route: 048
  5. TACALCITOL [Suspect]
     Route: 061
  6. DIFLUPREDNATE [Suspect]
     Route: 061
  7. BETAMETHASONE BUTYRATE PROPIONATE [Suspect]
     Route: 061
  8. EKSALB                             /00028601/ [Suspect]
     Route: 061
  9. LAXATIVES [Concomitant]
     Route: 048
  10. POSTERISAN                         /00028601/ [Concomitant]
     Route: 054

REACTIONS (1)
  - ACQUIRED HAEMOPHILIA [None]
